FAERS Safety Report 8051007-7 (Version None)
Quarter: 2012Q1

REPORT INFORMATION
  Report Type: 
  Country: None (occurrence: None)
  Receive Date: 20120117
  Receipt Date: 20120111
  Transmission Date: 20120608
  Serious: Yes (Hospitalization)
  Sender: FDA-Public Use
  Company Number: PHEH2012US001377

PATIENT
  Sex: Female

DRUGS (1)
  1. EXJADE [Suspect]
     Dosage: 1125 MG, QD
     Route: 048

REACTIONS (6)
  - NEOPLASM [None]
  - LOCAL SWELLING [None]
  - SWELLING FACE [None]
  - DIARRHOEA [None]
  - MUSCULOSKELETAL STIFFNESS [None]
  - RESPIRATORY FAILURE [None]
